FAERS Safety Report 21315088 (Version 1)
Quarter: 2022Q3

REPORT INFORMATION
  Report Type: Report from Study
  Country: US (occurrence: US)
  Receive Date: 20220909
  Receipt Date: 20220909
  Transmission Date: 20221026
  Serious: Yes (Hospitalization)
  Sender: FDA-Public Use
  Company Number: US-TAKEDA-US201925148

PATIENT
  Age: 50 Year
  Sex: Male
  Weight: 79.365 kg

DRUGS (24)
  1. TEDUGLUTIDE [Suspect]
     Active Substance: TEDUGLUTIDE
     Indication: Short-bowel syndrome
     Dosage: 4.3 MILLIGRAM (0.05 MG KG DAILY DOSE, 7 DOSES PER WEEK)
     Route: 042
     Dates: start: 201711, end: 20171130
  2. TEDUGLUTIDE [Suspect]
     Active Substance: TEDUGLUTIDE
     Indication: Short-bowel syndrome
     Dosage: 4.3 MILLIGRAM (0.05 MG KG DAILY DOSE, 7 DOSES PER WEEK)
     Route: 042
     Dates: start: 201711, end: 20171130
  3. TEDUGLUTIDE [Suspect]
     Active Substance: TEDUGLUTIDE
     Indication: Short-bowel syndrome
     Dosage: 4.3 MILLIGRAM (0.05 MG KG DAILY DOSE, 7 DOSES PER WEEK)
     Route: 042
     Dates: start: 201711, end: 20171130
  4. TEDUGLUTIDE [Suspect]
     Active Substance: TEDUGLUTIDE
     Indication: Short-bowel syndrome
     Dosage: 4.3 MILLIGRAM (0.05 MG KG DAILY DOSE, 7 DOSES PER WEEK)
     Route: 042
     Dates: start: 201711, end: 20171130
  5. TEDUGLUTIDE [Suspect]
     Active Substance: TEDUGLUTIDE
     Dosage: 3.8 MILLIGRAM (0.04 MG KG DAILY DOSE, 7 DOSES PER WEEK)
     Route: 042
     Dates: start: 201807, end: 20191003
  6. TEDUGLUTIDE [Suspect]
     Active Substance: TEDUGLUTIDE
     Dosage: 3.8 MILLIGRAM (0.04 MG KG DAILY DOSE, 7 DOSES PER WEEK)
     Route: 042
     Dates: start: 201807, end: 20191003
  7. TEDUGLUTIDE [Suspect]
     Active Substance: TEDUGLUTIDE
     Dosage: 3.8 MILLIGRAM (0.04 MG KG DAILY DOSE, 7 DOSES PER WEEK)
     Route: 042
     Dates: start: 201807, end: 20191003
  8. TEDUGLUTIDE [Suspect]
     Active Substance: TEDUGLUTIDE
     Dosage: 3.8 MILLIGRAM (0.04 MG KG DAILY DOSE, 7 DOSES PER WEEK)
     Route: 042
     Dates: start: 201807, end: 20191003
  9. TEDUGLUTIDE [Suspect]
     Active Substance: TEDUGLUTIDE
     Dosage: 3.8 MILLIGRAM (0.04 MG KG DAILY DOSE, 7 DOSES PER WEEK)
     Route: 042
     Dates: start: 20191010, end: 202005
  10. TEDUGLUTIDE [Suspect]
     Active Substance: TEDUGLUTIDE
     Dosage: 3.8 MILLIGRAM (0.04 MG KG DAILY DOSE, 7 DOSES PER WEEK)
     Route: 042
     Dates: start: 20191010, end: 202005
  11. TEDUGLUTIDE [Suspect]
     Active Substance: TEDUGLUTIDE
     Dosage: 3.8 MILLIGRAM (0.04 MG KG DAILY DOSE, 7 DOSES PER WEEK)
     Route: 042
     Dates: start: 20191010, end: 202005
  12. TEDUGLUTIDE [Suspect]
     Active Substance: TEDUGLUTIDE
     Dosage: 3.8 MILLIGRAM (0.04 MG KG DAILY DOSE, 7 DOSES PER WEEK)
     Route: 042
     Dates: start: 20191010, end: 202005
  13. TEDUGLUTIDE [Suspect]
     Active Substance: TEDUGLUTIDE
     Dosage: 3.3 MILLIGRAM
     Route: 042
     Dates: start: 202005, end: 202007
  14. TEDUGLUTIDE [Suspect]
     Active Substance: TEDUGLUTIDE
     Dosage: 3.3 MILLIGRAM
     Route: 042
     Dates: start: 202005, end: 202007
  15. TEDUGLUTIDE [Suspect]
     Active Substance: TEDUGLUTIDE
     Dosage: 3.3 MILLIGRAM
     Route: 042
     Dates: start: 202005, end: 202007
  16. TEDUGLUTIDE [Suspect]
     Active Substance: TEDUGLUTIDE
     Dosage: 3.3 MILLIGRAM
     Route: 042
     Dates: start: 202005, end: 202007
  17. TEDUGLUTIDE [Suspect]
     Active Substance: TEDUGLUTIDE
     Dosage: 3.4 MILLIGRAM
     Route: 042
     Dates: start: 202007
  18. TEDUGLUTIDE [Suspect]
     Active Substance: TEDUGLUTIDE
     Dosage: 3.4 MILLIGRAM
     Route: 042
     Dates: start: 202007
  19. TEDUGLUTIDE [Suspect]
     Active Substance: TEDUGLUTIDE
     Dosage: 3.4 MILLIGRAM
     Route: 042
     Dates: start: 202007
  20. TEDUGLUTIDE [Suspect]
     Active Substance: TEDUGLUTIDE
     Dosage: 3.4 MILLIGRAM
     Route: 042
     Dates: start: 202007
  21. LOMOTIL [Concomitant]
     Active Substance: ATROPINE SULFATE\DIPHENOXYLATE HYDROCHLORIDE
     Indication: Diarrhoea
  22. VANCOMYCIN [Concomitant]
     Active Substance: VANCOMYCIN
     Indication: Staphylococcal infection
  23. BACTRIM [Concomitant]
     Active Substance: SULFAMETHOXAZOLE\TRIMETHOPRIM
     Indication: Bacteraemia
  24. ATIVAN [Concomitant]
     Active Substance: LORAZEPAM
     Indication: Schizophrenia

REACTIONS (1)
  - Incisional hernia [Recovered/Resolved]

NARRATIVE: CASE EVENT DATE: 20180501
